FAERS Safety Report 19960214 (Version 1)
Quarter: 2021Q4

REPORT INFORMATION
  Report Type: Spontaneous
  Country: GB (occurrence: GB)
  Receive Date: 20211015
  Receipt Date: 20211015
  Transmission Date: 20220303
  Serious: Yes (Hospitalization)
  Sender: FDA-Public Use
  Company Number: GB-SA-SAC20211012000137

PATIENT
  Age: 13 Year
  Sex: Female
  Weight: 54.5 kg

DRUGS (11)
  1. DOCETAXEL [Suspect]
     Active Substance: DOCETAXEL
     Indication: Synovial sarcoma
     Dosage: 117 MG, QCY
     Route: 042
     Dates: start: 20201209, end: 20210310
  2. GEMCITABINE HYDROCHLORIDE [Suspect]
     Active Substance: GEMCITABINE HYDROCHLORIDE
     Indication: Synovial sarcoma
     Dosage: 1404 MG, QCY
     Route: 042
     Dates: start: 20201201, end: 20210310
  3. MEROPENEM [Suspect]
     Active Substance: MEROPENEM
     Dosage: UNK
     Dates: start: 20210128
  4. VANCOMYCIN [Suspect]
     Active Substance: VANCOMYCIN
     Dosage: UNK
     Dates: start: 20210128
  5. FUROSEMIDE [Suspect]
     Active Substance: FUROSEMIDE
     Dosage: UNK
     Dates: start: 20210209
  6. AZITHROMYCIN ANHYDROUS [Suspect]
     Active Substance: AZITHROMYCIN ANHYDROUS
     Dosage: UNK UNK, BID
     Dates: start: 20210209
  7. CIPROFLOXACIN [Suspect]
     Active Substance: CIPROFLOXACIN
     Dosage: UNK UNK, BID
     Dates: start: 20210209
  8. DEXAMETHASONE [Suspect]
     Active Substance: DEXAMETHASONE
     Dosage: UNK
     Dates: start: 20201209
  9. RAMUCIRUMAB [Suspect]
     Active Substance: RAMUCIRUMAB
     Indication: Synovial sarcoma
     Dosage: 489.6 MG, QCY
     Route: 042
     Dates: start: 20201201, end: 20210310
  10. PIPERACILLIN SODIUM\TAZOBACTAM SODIUM [Suspect]
     Active Substance: PIPERACILLIN SODIUM\TAZOBACTAM SODIUM
     Dosage: UNK
     Dates: start: 20210128
  11. GRANULOCYTE COLONY-STIMULATING FACTOR NOS [Suspect]
     Active Substance: GRANULOCYTE COLONY-STIMULATING FACTOR NOS
     Dosage: UNK
     Dates: start: 20201211

REACTIONS (7)
  - Pyrexia [Recovered/Resolved]
  - Erythema [Recovering/Resolving]
  - Pain [Recovering/Resolving]
  - Haemoglobin decreased [Unknown]
  - Platelet count increased [Unknown]
  - Dyspnoea [Unknown]
  - Pyrexia [Recovered/Resolved]

NARRATIVE: CASE EVENT DATE: 20201218
